FAERS Safety Report 5419167-1 (Version None)
Quarter: 2007Q3

REPORT INFORMATION
  Report Type: 
  Country: None (occurrence: None)
  Receive Date: 20070815
  Receipt Date: 20070815
  Transmission Date: 20080115
  Serious: Yes (Hospitalization)
  Sender: FDA-Public Use
  Company Number: None

PATIENT
  Age: 79 Year
  Sex: Female
  Weight: 84.5 kg

DRUGS (21)
  1. NAFCILLIN SODIUM [Suspect]
     Dosage: 8GM EVERY 24 HRS IV
     Route: 042
     Dates: start: 20070713, end: 20070716
  2. TOBRADEX [Concomitant]
  3. MORPHINE SULFATE [Concomitant]
  4. HEPARIN SODIUM [Concomitant]
  5. ACETAMINOPHEN [Concomitant]
  6. ALBUTEROL [Concomitant]
  7. POTASSIUM CHLORIDE [Concomitant]
  8. ISOFLURANE [Concomitant]
  9. PROPOFOL [Concomitant]
  10. SUCCINYLCHOLINE CHLORIDE [Concomitant]
  11. ROCURONIUM BROMIDE [Concomitant]
  12. FENTANYL CITRATE [Concomitant]
  13. MIDAZALAM [Concomitant]
  14. METOPROLOL TARTRATE [Concomitant]
  15. NEXIUM [Concomitant]
  16. LACTATED RINGER'S [Concomitant]
  17. BUPIVACCINE HCL/EPINEPHRINE BITART [Concomitant]
  18. DIGOXIN [Concomitant]
  19. LORTAB [Concomitant]
  20. RIFAMPICIN [Concomitant]
  21. FUROSEMIDE [Concomitant]

REACTIONS (1)
  - NEPHRITIS INTERSTITIAL [None]
